FAERS Safety Report 8302878-8 (Version None)
Quarter: 2012Q2

REPORT INFORMATION
  Report Type: 
  Country: None (occurrence: None)
  Receive Date: 20120420
  Receipt Date: 20120417
  Transmission Date: 20120825
  Serious: Yes (Death)
  Sender: FDA-Public Use
  Company Number: SE-ROCHE-1060639

PATIENT
  Age: 90 Year
  Sex: Male

DRUGS (5)
  1. ASPIRIN [Concomitant]
  2. TRAVATAN [Concomitant]
  3. LUCENTIS [Suspect]
     Indication: RETINAL VEIN OCCLUSION
     Route: 050
     Dates: start: 20111227
  4. METOPROLOL TARTRATE [Concomitant]
  5. FUROSEMIDE [Concomitant]

REACTIONS (1)
  - MYOCARDIAL INFARCTION [None]
